FAERS Safety Report 11853004 (Version 1)
Quarter: 2015Q4

REPORT INFORMATION
  Report Type: Spontaneous
  Country: US (occurrence: US)
  Receive Date: 20151218
  Receipt Date: 20151218
  Transmission Date: 20160305
  Serious: Yes (Other)
  Sender: FDA-Public Use
  Company Number: US-GLAXOSMITHKLINE-A1009181A

PATIENT
  Sex: Female

DRUGS (15)
  1. LOVAZA [Suspect]
     Active Substance: OMEGA-3-ACID ETHYL ESTERS
     Dosage: 2 DF, QD
  2. VITAMIN B12 [Concomitant]
     Active Substance: CYANOCOBALAMIN
  3. SPIRONOLACTONE. [Concomitant]
     Active Substance: SPIRONOLACTONE
  4. SIMVASTATIN. [Concomitant]
     Active Substance: SIMVASTATIN
  5. BIOTIN [Concomitant]
     Active Substance: BIOTIN
  6. NASONEX [Concomitant]
     Active Substance: MOMETASONE FUROATE
  7. PLAVIX [Concomitant]
     Active Substance: CLOPIDOGREL BISULFATE
  8. PREVACID [Concomitant]
     Active Substance: LANSOPRAZOLE
  9. BIOTENE [Concomitant]
     Active Substance: SODIUM MONOFLUOROPHOSPHATE
  10. VITAMIN C [Concomitant]
     Active Substance: ASCORBIC ACID
  11. FUROSEMIDE. [Concomitant]
     Active Substance: FUROSEMIDE
  12. CALCIUM + D [Concomitant]
     Active Substance: CALCIUM\VITAMIN D
  13. LOVAZA [Suspect]
     Active Substance: OMEGA-3-ACID ETHYL ESTERS
     Indication: ARTHRALGIA
     Route: 048
     Dates: start: 2006
  14. LEVOTHYROXINE. [Concomitant]
     Active Substance: LEVOTHYROXINE
  15. CLONIDINE. [Concomitant]
     Active Substance: CLONIDINE

REACTIONS (3)
  - Choking [Unknown]
  - Therapeutic response unexpected [Unknown]
  - Influenza [Unknown]

NARRATIVE: CASE EVENT DATE: 2006
